FAERS Safety Report 9462096 (Version 2)
Quarter: 2013Q3

REPORT INFORMATION
  Report Type: Spontaneous
  Country: US (occurrence: US)
  Receive Date: 20130816
  Receipt Date: 20130909
  Transmission Date: 20140515
  Serious: Yes (Hospitalization)
  Sender: FDA-Public Use
  Company Number: US-GILEAD-2013-0078153

PATIENT
  Sex: Female

DRUGS (5)
  1. LETAIRIS [Suspect]
     Indication: PULMONARY ARTERIAL HYPERTENSION
     Dosage: 10 MG, QD
  2. LETAIRIS [Suspect]
     Dates: start: 20121210
  3. REVATIO [Concomitant]
  4. LASIX                              /00032601/ [Concomitant]
     Indication: FLUID RETENTION
     Dosage: UNK
  5. ALDACTONE                          /00006201/ [Concomitant]
     Indication: FLUID RETENTION
     Dosage: UNK

REACTIONS (4)
  - Chronic obstructive pulmonary disease [Unknown]
  - Fluid retention [Unknown]
  - Oedema peripheral [Unknown]
  - Dyspnoea [Unknown]
